FAERS Safety Report 16797315 (Version 2)
Quarter: 2019Q4

REPORT INFORMATION
  Report Type: Report from Study
  Country: US (occurrence: US)
  Receive Date: 20190912
  Receipt Date: 20191001
  Transmission Date: 20200122
  Serious: Yes (Other)
  Sender: FDA-Public Use
  Company Number: US-ROCHE-2401601

PATIENT
  Sex: Female

DRUGS (1)
  1. OCREVUS [Suspect]
     Active Substance: OCRELIZUMAB
     Indication: RELAPSING-REMITTING MULTIPLE SCLEROSIS
     Dosage: ONGOING:YES?300 ON DAY 1 AND DAY 14 FOLLOWED BY 600 MG ONCE IN 6 MONTHS?DATE OF TREATMENT :12/JAN/20
     Route: 042
     Dates: start: 20170714

REACTIONS (2)
  - Device breakage [Unknown]
  - Tooth abscess [Recovered/Resolved]
